FAERS Safety Report 24530333 (Version 1)
Quarter: 2024Q4

REPORT INFORMATION
  Report Type: Spontaneous
  Country: US (occurrence: US)
  Receive Date: 20241021
  Receipt Date: 20241021
  Transmission Date: 20250114
  Serious: No
  Sender: PFIZER
  Company Number: US-PFIZER INC-PV202400134231

PATIENT
  Age: 42 Year
  Sex: Male

DRUGS (2)
  1. GENOTROPIN [Suspect]
     Active Substance: SOMATROPIN
     Indication: Pituitary tumour benign
     Dosage: UNK
  2. GENOTROPIN [Suspect]
     Active Substance: SOMATROPIN
     Indication: Pituitary gland operation

REACTIONS (12)
  - Weight increased [Unknown]
  - Increased appetite [Unknown]
  - Fatigue [Unknown]
  - Headache [Not Recovered/Not Resolved]
  - Neck pain [Unknown]
  - Disease progression [Unknown]
  - Nausea [Unknown]
  - Limb injury [Unknown]
  - Lethargy [Unknown]
  - Libido decreased [Unknown]
  - Thirst [Unknown]
  - Dry mouth [Unknown]
